FAERS Safety Report 17297744 (Version 4)
Quarter: 2020Q1

REPORT INFORMATION
  Report Type: Spontaneous
  Country: JP (occurrence: JP)
  Receive Date: 20200122
  Receipt Date: 20200318
  Transmission Date: 20200409
  Serious: Yes (Death, Life-Threatening, Other)
  Sender: FDA-Public Use
  Company Number: JP-JAZZ-2020-JP-000818

PATIENT
  Age: 25 Year
  Sex: Male
  Weight: 70.9 kg

DRUGS (1)
  1. DEFITELIO [Suspect]
     Active Substance: DEFIBROTIDE SODIUM
     Indication: VENOOCCLUSIVE LIVER DISEASE
     Dosage: 25 MG/KG
     Route: 042
     Dates: start: 20191030, end: 20191223

REACTIONS (7)
  - Epistaxis [Recovered/Resolved]
  - Febrile neutropenia [Unknown]
  - Venoocclusive liver disease [Fatal]
  - Hypotension [Recovered/Resolved with Sequelae]
  - Engraft failure [Unknown]
  - Sepsis [Fatal]
  - Peritonitis [Fatal]

NARRATIVE: CASE EVENT DATE: 2019
